FAERS Safety Report 19984568 (Version 1)
Quarter: 2021Q4

REPORT INFORMATION
  Report Type: Spontaneous
  Country: IN (occurrence: IN)
  Receive Date: 20211022
  Receipt Date: 20211022
  Transmission Date: 20220303
  Serious: Yes (Death, Hospitalization, Other)
  Sender: FDA-Public Use
  Company Number: IN-BOEHRINGERINGELHEIM-2021-BI-133666

PATIENT
  Age: 70 Year
  Sex: Female

DRUGS (1)
  1. PRADAXA [Suspect]
     Active Substance: DABIGATRAN ETEXILATE MESYLATE
     Indication: Vascular graft thrombosis
     Route: 048

REACTIONS (9)
  - Sepsis [Fatal]
  - Skin lesion [Unknown]
  - Condition aggravated [Unknown]
  - Toxicity to various agents [Recovered/Resolved]
  - Haemorrhagic diathesis [Recovered/Resolved]
  - Acute kidney injury [Recovered/Resolved]
  - Skin necrosis [Unknown]
  - Haematuria [Recovered/Resolved]
  - Pseudomonas infection [Unknown]
